FAERS Safety Report 11833841 (Version 1)
Quarter: 2015Q4

REPORT INFORMATION
  Report Type: Spontaneous
  Country: JP (occurrence: JP)
  Receive Date: 20151214
  Receipt Date: 20151214
  Transmission Date: 20160305
  Serious: Yes (Hospitalization, Other)
  Sender: FDA-Public Use
  Company Number: JP-PFIZER INC-2015180377

PATIENT
  Age: 82 Year
  Sex: Male
  Weight: 48 kg

DRUGS (11)
  1. GABAPEN [Suspect]
     Active Substance: GABAPENTIN
     Indication: POST HERPETIC NEURALGIA
     Dosage: 200 MG, 2X/DAY
     Dates: start: 20130507, end: 20130528
  2. JUZENTAIHOTO /07985601/ [Suspect]
     Active Substance: HERBALS
     Dosage: UNK
     Dates: end: 20130531
  3. NAUZELIN [Concomitant]
     Active Substance: DOMPERIDONE
     Dosage: UNK
     Dates: end: 20130531
  4. SENNA [Concomitant]
     Active Substance: SENNA LEAF\SENNOSIDES\SENNOSIDES A AND B
     Dosage: 0.5 G, 1X/DAY
     Dates: end: 20130531
  5. CLARITH [Concomitant]
     Active Substance: CLARITHROMYCIN
     Dosage: UNK
     Dates: end: 20130531
  6. TRAMCET [Suspect]
     Active Substance: ACETAMINOPHEN\TRAMADOL
     Indication: POST HERPETIC NEURALGIA
     Dosage: 2 DF, 2X/DAY
     Route: 048
     Dates: start: 20130304, end: 20130531
  7. DOGMATYL [Concomitant]
     Active Substance: SULPIRIDE
     Indication: POST HERPETIC NEURALGIA
     Dosage: 50 MG, 2X/DAY
     Dates: start: 20130528, end: 20130531
  8. GASCON [Concomitant]
     Active Substance: DIMETHICONE
     Dosage: 40 MG, 1X/DAY
     Dates: end: 20130531
  9. MUCODYNE [Concomitant]
     Active Substance: CARBOCYSTEINE
     Dosage: UNK
     Dates: end: 20130531
  10. PURSENNID /00571902/ [Concomitant]
     Active Substance: SENNOSIDES A AND B
     Dosage: 12 MG, 1X/DAY
     Dates: end: 20130531
  11. PARIET [Concomitant]
     Active Substance: RABEPRAZOLE SODIUM
     Dosage: UNK
     Dates: end: 20130531

REACTIONS (5)
  - Weight decreased [Unknown]
  - Decreased appetite [Unknown]
  - Drug-induced liver injury [Recovered/Resolved]
  - Product use issue [Unknown]
  - Bile duct stone [Recovered/Resolved]

NARRATIVE: CASE EVENT DATE: 20130507
